FAERS Safety Report 19980978 (Version 2)
Quarter: 2021Q4

REPORT INFORMATION
  Report Type: Spontaneous
  Country: TW (occurrence: TW)
  Receive Date: 20211021
  Receipt Date: 20211029
  Transmission Date: 20220303
  Serious: Yes (Other)
  Sender: FDA-Public Use
  Company Number: TW-MERCK HEALTHCARE KGAA-9272118

PATIENT
  Age: 66 Year
  Sex: Male

DRUGS (2)
  1. AVELUMAB [Suspect]
     Active Substance: AVELUMAB
     Indication: Renal cell carcinoma
     Route: 041
     Dates: start: 202104
  2. AXITINIB [Concomitant]
     Active Substance: AXITINIB
     Indication: Renal cell carcinoma
     Dosage: FREQUENCY TIME: QD OR BID

REACTIONS (3)
  - Cytomegalovirus gastrointestinal infection [Recovering/Resolving]
  - Gastric haemorrhage [Recovering/Resolving]
  - Haemoglobin decreased [Recovering/Resolving]

NARRATIVE: CASE EVENT DATE: 20210701
